FAERS Safety Report 6103033-2 (Version None)
Quarter: 2009Q1

REPORT INFORMATION
  Report Type: 
  Country: None (occurrence: None)
  Receive Date: 20090305
  Receipt Date: 20090304
  Transmission Date: 20090719
  Serious: Yes (Hospitalization)
  Sender: FDA-Public Use
  Company Number: PHHO2007US13893

PATIENT
  Sex: Male
  Weight: 76.8 kg

DRUGS (7)
  1. LOTREL [Suspect]
     Indication: HYPERTENSION
     Dosage: LEVEL 1
     Route: 048
     Dates: start: 20040216
  2. LOTREL [Suspect]
     Dosage: LEVEL 3
     Route: 048
     Dates: start: 20040510, end: 20070927
  3. DITROPAN XL [Concomitant]
  4. NABUMETONE [Concomitant]
     Indication: OSTEOARTHRITIS
  5. PROSCAR [Concomitant]
     Indication: BENIGN PROSTATIC HYPERPLASIA
  6. ASPIRIN [Concomitant]
  7. GLIPIZIDE [Concomitant]
     Indication: DIABETES MELLITUS

REACTIONS (4)
  - ANGIOEDEMA [None]
  - CONCOMITANT DISEASE PROGRESSION [None]
  - FOOD ALLERGY [None]
  - SWOLLEN TONGUE [None]
